FAERS Safety Report 19270174 (Version 1)
Quarter: 2021Q2

REPORT INFORMATION
  Report Type: Report from Study
  Country: US (occurrence: US)
  Receive Date: 20210518
  Receipt Date: 20210518
  Transmission Date: 20210717
  Serious: Yes (Other)
  Sender: FDA-Public Use
  Company Number: US-ASTRAZENECA-2021A399889

PATIENT
  Age: 27960 Day
  Sex: Male
  Weight: 83.9 kg

DRUGS (17)
  1. FISH OIL [Concomitant]
     Active Substance: FISH OIL
  2. ISOSORBIDE. [Concomitant]
     Active Substance: ISOSORBIDE
  3. NORVASC [Concomitant]
     Active Substance: AMLODIPINE BESYLATE
  4. ASPIRIN. [Concomitant]
     Active Substance: ASPIRIN
  5. VIT D [Concomitant]
     Active Substance: VITAMIN D NOS
  6. CALQUENCE [Suspect]
     Active Substance: ACALABRUTINIB
     Indication: MANTLE CELL LYMPHOMA
     Route: 048
     Dates: start: 20190330, end: 20210422
  7. CENTRUM [Concomitant]
     Active Substance: VITAMINS
  8. LOPRESSOR [Concomitant]
     Active Substance: METOPROLOL TARTRATE
  9. LEVOTHROID [Concomitant]
     Active Substance: LEVOTHYROXINE SODIUM
  10. LORAZEPAM. [Concomitant]
     Active Substance: LORAZEPAM
  11. COENZYME Q10 [Concomitant]
     Active Substance: DIETARY SUPPLEMENT\UBIDECARENONE
  12. PEPCID [Concomitant]
     Active Substance: FAMOTIDINE
  13. CALQUENCE [Suspect]
     Active Substance: ACALABRUTINIB
     Indication: BURKITT^S LYMPHOMA STAGE II
     Route: 048
     Dates: start: 20190330, end: 20210422
  14. LIPITOR [Concomitant]
     Active Substance: ATORVASTATIN CALCIUM
  15. ATORVASTATIN [Concomitant]
     Active Substance: ATORVASTATIN
  16. ELIQUIS [Concomitant]
     Active Substance: APIXABAN
  17. IMBRUVICA [Concomitant]
     Active Substance: IBRUTINIB

REACTIONS (1)
  - Malignant neoplasm progression [Not Recovered/Not Resolved]

NARRATIVE: CASE EVENT DATE: 20210401
